FAERS Safety Report 8130454-9 (Version None)
Quarter: 2012Q1

REPORT INFORMATION
  Report Type: 
  Country: None (occurrence: None)
  Receive Date: 20120210
  Receipt Date: 20120203
  Transmission Date: 20120608
  Serious: Yes (Hospitalization)
  Sender: FDA-Public Use
  Company Number: FR-MERCK-1202FRA00031

PATIENT
  Sex: Female

DRUGS (13)
  1. DARUNAVIR [Concomitant]
     Indication: HIV INFECTION
     Route: 048
     Dates: start: 20111201, end: 20111223
  2. RITONAVIR [Concomitant]
     Route: 048
     Dates: start: 20120101, end: 20120101
  3. ETRAVIRINE [Concomitant]
     Route: 048
     Dates: start: 20120101
  4. RITONAVIR [Concomitant]
     Indication: HIV INFECTION
     Route: 048
     Dates: start: 20111201, end: 20111223
  5. ISENTRESS [Suspect]
     Indication: HIV INFECTION
     Route: 048
     Dates: start: 20111201, end: 20111223
  6. DARUNAVIR [Concomitant]
     Route: 048
     Dates: start: 20120101
  7. DARUNAVIR [Concomitant]
     Route: 048
     Dates: start: 20120101, end: 20120101
  8. ASPIRIN [Concomitant]
     Route: 048
     Dates: start: 20120101, end: 20120101
  9. ISENTRESS [Suspect]
     Route: 048
     Dates: start: 20120101, end: 20120101
  10. ISENTRESS [Suspect]
     Route: 048
     Dates: start: 20120101, end: 20120101
  11. ETRAVIRINE [Concomitant]
     Indication: HIV INFECTION
     Route: 048
     Dates: start: 20111201, end: 20111223
  12. ETRAVIRINE [Concomitant]
     Route: 048
     Dates: start: 20120101, end: 20120101
  13. RITONAVIR [Concomitant]
     Route: 048
     Dates: start: 20120101

REACTIONS (2)
  - RASH GENERALISED [None]
  - CARDIAC DISORDER [None]
